FAERS Safety Report 8355667-2 (Version None)
Quarter: 2012Q2

REPORT INFORMATION
  Report Type: 
  Country: None (occurrence: None)
  Receive Date: 20120514
  Receipt Date: 20120504
  Transmission Date: 20120825
  Serious: Yes (Hospitalization)
  Sender: FDA-Public Use
  Company Number: US-BIOGENIDEC-2012BI015659

PATIENT
  Sex: Female

DRUGS (1)
  1. AVONEX [Suspect]
     Indication: MULTIPLE SCLEROSIS
     Route: 030
     Dates: start: 19990101

REACTIONS (6)
  - DEPRESSION [None]
  - GAIT DISTURBANCE [None]
  - TRACHEAL OPERATION [None]
  - PAIN IN EXTREMITY [None]
  - DIARRHOEA [None]
  - FEELING ABNORMAL [None]
